FAERS Safety Report 9657938 (Version 1)
Quarter: 2013Q4

REPORT INFORMATION
  Report Type: Spontaneous
  Country: PL (occurrence: PL)
  Receive Date: 20131030
  Receipt Date: 20131030
  Transmission Date: 20140711
  Serious: Yes (Death, Hospitalization)
  Sender: FDA-Public Use
  Company Number: PL-ABBVIE-13P-129-1162989-00

PATIENT
  Age: 38 Year
  Sex: Male

DRUGS (3)
  1. GOPTEN [Suspect]
     Indication: HYPERTENSION
     Route: 048
     Dates: start: 2010
  2. NEBIVOLOL [Concomitant]
     Indication: HYPERTENSION
     Route: 048
     Dates: start: 201207
  3. TERTENSIF [Concomitant]
     Indication: HYPERTENSION
     Dates: start: 2012

REACTIONS (1)
  - Cardiac arrest [Fatal]
